FAERS Safety Report 21696103 (Version 1)
Quarter: 2022Q4

REPORT INFORMATION
  Report Type: Spontaneous
  Country: NL (occurrence: NL)
  Receive Date: 20221207
  Receipt Date: 20221207
  Transmission Date: 20230112
  Serious: Yes (Life-Threatening, Hospitalization)
  Sender: FDA-Public Use
  Company Number: None

PATIENT
  Sex: Male
  Weight: 78.5 kg

DRUGS (19)
  1. DICLOFENAC SODIUM [Suspect]
     Active Substance: DICLOFENAC SODIUM
     Indication: Pain
     Route: 065
     Dates: start: 20200101, end: 20221103
  2. METFORMIN HYDROCHLORIDE [Suspect]
     Active Substance: METFORMIN HYDROCHLORIDE
     Indication: Type 2 diabetes mellitus
     Dosage: 3DD
     Route: 065
     Dates: start: 20190101, end: 20221103
  3. IBUPROFEN [Suspect]
     Active Substance: IBUPROFEN
     Indication: Pain
     Route: 065
     Dates: start: 20200101, end: 20221103
  4. CYANOCOBALAMIN [Concomitant]
     Active Substance: CYANOCOBALAMIN
     Indication: Product used for unknown indication
  5. SUNITINIB [Concomitant]
     Active Substance: SUNITINIB
     Indication: Product used for unknown indication
     Dosage: 1DD1
  6. SUNITINIB [Concomitant]
     Active Substance: SUNITINIB
     Dosage: 1DD1
  7. FUROSEMIDE [Concomitant]
     Active Substance: FUROSEMIDE
     Indication: Product used for unknown indication
     Dosage: 40 MG, ORAL, 1DD
     Route: 048
  8. SPIRONOLACTONE [Concomitant]
     Active Substance: SPIRONOLACTONE
     Indication: Product used for unknown indication
     Dosage: 1DD1
  9. ROSUVASTATIN [Concomitant]
     Active Substance: ROSUVASTATIN
     Indication: Product used for unknown indication
     Dosage: 1DD1
  10. VITAMIN D3 [Concomitant]
     Active Substance: CHOLECALCIFEROL
     Indication: Product used for unknown indication
  11. PANTOPRAZOLE SODIUM [Concomitant]
     Active Substance: PANTOPRAZOLE SODIUM
     Indication: Product used for unknown indication
     Dosage: 1DD1
  12. METOCLOPRAMIDE [Concomitant]
     Active Substance: METOCLOPRAMIDE
     Indication: Product used for unknown indication
     Dosage: 3DD
  13. IVABRADINE [Concomitant]
     Active Substance: IVABRADINE
     Indication: Product used for unknown indication
     Dosage: 1DD1
  14. SACUBITRIL\VALSARTAN [Concomitant]
     Active Substance: SACUBITRIL\VALSARTAN
     Indication: Product used for unknown indication
     Dosage: 2DD
  15. NIVOLUMAB INFUUS [Concomitant]
     Indication: Product used for unknown indication
  16. INSULIN GLARGINE [Concomitant]
     Active Substance: INSULIN GLARGINE
     Indication: Product used for unknown indication
     Dosage: 300 E/ML
  17. INSULINE ASPART [Concomitant]
     Indication: Product used for unknown indication
     Dosage: 100E/ML PEN 3ML
  18. DENOSUMAB [Concomitant]
     Active Substance: DENOSUMAB
     Indication: Product used for unknown indication
     Dosage: INJVLST 70MG/ML / XGEVA 120 INJVLST 70MG/ML FLACON 1,7ML??1 PIECE, SUBCUTANEOUSLY, 1X EVERY 4 WEEKS
     Route: 058
  19. IPILIMUMAB INFUUS [Concomitant]
     Indication: Product used for unknown indication

REACTIONS (2)
  - Lactic acidosis [Recovered/Resolved]
  - Renal failure [Recovered/Resolved]
